FAERS Safety Report 11340210 (Version 2)
Quarter: 2015Q4

REPORT INFORMATION
  Report Type: Spontaneous
  Country: IT (occurrence: IT)
  Receive Date: 20150805
  Receipt Date: 20151002
  Transmission Date: 20160304
  Serious: Yes (Hospitalization)
  Sender: FDA-Public Use
  Company Number: IT-ACTAVIS-2015-16208

PATIENT
  Age: 67 Year
  Sex: Female

DRUGS (5)
  1. ACETAMINOPHEN AND CODEINE [Suspect]
     Active Substance: ACETAMINOPHEN\CODEINE PHOSPHATE
     Indication: HEADACHE
     Dosage: 3 DF, DAILY
     Route: 048
     Dates: start: 20140101, end: 20150108
  2. XANAX [Concomitant]
     Active Substance: ALPRAZOLAM
     Indication: ANXIETY
     Dosage: 5 DF, UNKNOWN
     Route: 065
     Dates: start: 20140101
  3. CONTRAMAL [Suspect]
     Active Substance: TRAMADOL HYDROCHLORIDE
     Indication: HEADACHE
     Dosage: UP TO 60 GTT X 6 DAILY FOR ABOUT A YEAR THEN UP TO 900 MG DAILY
     Route: 048
     Dates: start: 20140101, end: 20150108
  4. IBUPROFEN (UNKNOWN) [Suspect]
     Active Substance: IBUPROFEN
     Indication: HEADACHE
     Dosage: 2 DF, DAILY
     Route: 048
     Dates: start: 20140101, end: 20150108
  5. TOTALIP [Concomitant]
     Active Substance: ATORVASTATIN
     Indication: HYPERCHOLESTEROLAEMIA
     Dosage: UNK
     Dates: start: 20140101

REACTIONS (4)
  - Drug abuse [Recovered/Resolved]
  - Headache [Recovered/Resolved]
  - Overdose [Recovered/Resolved]
  - Drug ineffective [Recovered/Resolved]

NARRATIVE: CASE EVENT DATE: 20140101
